FAERS Safety Report 19378217 (Version 1)
Quarter: 2021Q2

REPORT INFORMATION
  Report Type: Spontaneous
  Country: US (occurrence: US)
  Receive Date: 20210605
  Receipt Date: 20210605
  Transmission Date: 20210717
  Serious: No
  Sender: FDA-Public Use
  Company Number: US-RECORDATI-2021001170

PATIENT

DRUGS (1)
  1. ISTURISA [Suspect]
     Active Substance: OSILODROSTAT PHOSPHATE
     Indication: CORTISOL INCREASED
     Dosage: 1 MILLIGRAM ONE TABLET TWICE DAILY

REACTIONS (1)
  - Blood potassium increased [Unknown]
